FAERS Safety Report 5040454-3 (Version None)
Quarter: 2006Q2

REPORT INFORMATION
  Report Type: 
  Country: None (occurrence: None)
  Receive Date: 20060627
  Receipt Date: 20060627
  Transmission Date: 20061013
  Serious: Yes (Other)
  Sender: FDA-Public Use
  Company Number: None

PATIENT
  Sex: Male
  Weight: 69.4003 kg

DRUGS (1)
  1. ASPIRIN/ DIPYRIDAMOLE (BOEHRINGER INGELHEIM) [Suspect]
     Indication: TRANSIENT ISCHAEMIC ATTACK
     Dosage: 25/200MG  BID PO
     Route: 048
     Dates: start: 20060510, end: 20060513

REACTIONS (3)
  - CHEST PAIN [None]
  - SINUS BRADYCARDIA [None]
  - TRANSIENT ISCHAEMIC ATTACK [None]
